FAERS Safety Report 23084231 (Version 1)
Quarter: 2023Q4

REPORT INFORMATION
  Report Type: Spontaneous
  Country: PT (occurrence: PT)
  Receive Date: 20231019
  Receipt Date: 20231019
  Transmission Date: 20240110
  Serious: Yes (Other)
  Sender: FDA-Public Use
  Company Number: PT-PFIZER INC-202300321925

PATIENT
  Age: 32 Year
  Sex: Male

DRUGS (2)
  1. DOXYCYCLINE HYCLATE [Suspect]
     Active Substance: DOXYCYCLINE HYCLATE
     Dosage: 100 MG, 2X/DAY
  2. TETRACYCLINE [Concomitant]
     Active Substance: TETRACYCLINE
     Dosage: 500 MG, 4X/DAY

REACTIONS (2)
  - Pathogen resistance [Recovered/Resolved]
  - Drug ineffective [Recovered/Resolved]
